FAERS Safety Report 7482099-1 (Version None)
Quarter: 2011Q2

REPORT INFORMATION
  Report Type: 
  Country: None (occurrence: None)
  Receive Date: 20110516
  Receipt Date: 20110511
  Transmission Date: 20111010
  Serious: Yes (Hospitalization, Other)
  Sender: FDA-Public Use
  Company Number: BR-ABBOTT-10P-020-0678396-00

PATIENT
  Sex: Female
  Weight: 79 kg

DRUGS (1)
  1. HUMIRA [Suspect]
     Indication: RHEUMATOID ARTHRITIS
     Route: 058
     Dates: start: 20080801, end: 20100701

REACTIONS (8)
  - CHOLELITHIASIS [None]
  - MALAISE [None]
  - PAIN [None]
  - GENERALISED OEDEMA [None]
  - ABDOMINAL DISTENSION [None]
  - LEIOMYOMA [None]
  - ANAEMIA [None]
  - HAEMORRHAGE [None]
